FAERS Safety Report 4766743-5 (Version None)
Quarter: 2005Q3

REPORT INFORMATION
  Report Type: 
  Country: None (occurrence: None)
  Receive Date: 20050908
  Receipt Date: 20050825
  Transmission Date: 20060218
  Serious: No
  Sender: FDA-Public Use
  Company Number: US015882

PATIENT
  Age: 19 Month
  Sex: Female

DRUGS (1)
  1. ACTIQ [Suspect]
     Dosage: 400 UG ONCE BUCCAL
     Route: 002
     Dates: start: 20050825, end: 20050825

REACTIONS (2)
  - ACCIDENTAL DRUG INTAKE BY CHILD [None]
  - SOMNOLENCE [None]
